FAERS Safety Report 24313794 (Version 2)
Quarter: 2024Q3

REPORT INFORMATION
  Report Type: Spontaneous
  Country: UA (occurrence: UA)
  Receive Date: 20240912
  Receipt Date: 20240920
  Transmission Date: 20241016
  Serious: Yes (Other)
  Sender: AMGEN
  Company Number: UA-AMGEN-UKRSP2024178426

PATIENT

DRUGS (1)
  1. FILGRASTIM [Suspect]
     Active Substance: FILGRASTIM
     Indication: Prophylaxis
     Dosage: 480 MICROGRAM, QD
     Route: 058

REACTIONS (1)
  - Neutropenia [Unknown]
